FAERS Safety Report 8013812-2 (Version None)
Quarter: 2011Q4

REPORT INFORMATION
  Report Type: 
  Country: None (occurrence: None)
  Receive Date: 20111229
  Receipt Date: 20111215
  Transmission Date: 20120403
  Serious: Yes (Hospitalization)
  Sender: FDA-Public Use
  Company Number: PHFR2011GB05854

PATIENT
  Sex: Male

DRUGS (8)
  1. LAMOTRIGINE [Concomitant]
  2. VALPROIC ACID [Concomitant]
  3. RAMIPRIL [Concomitant]
  4. OLANZAPINE [Concomitant]
  5. TAMSULOSIN HCL [Concomitant]
  6. CLOZARIL [Suspect]
     Dosage: 100 MG
     Dates: start: 20111011
  7. LAXILO [Concomitant]
  8. FUROSEMIDE [Concomitant]

REACTIONS (1)
  - DRUG ADMINISTRATION ERROR [None]
